FAERS Safety Report 25967139 (Version 1)
Quarter: 2025Q4

REPORT INFORMATION
  Report Type: Spontaneous
  Country: TW (occurrence: TW)
  Receive Date: 20251028
  Receipt Date: 20251028
  Transmission Date: 20260118
  Serious: Yes (Other)
  Sender: REGENERON
  Company Number: TW-BAYER-2025A139707

PATIENT
  Age: 55 Year
  Sex: Female

DRUGS (2)
  1. EYLEA [Suspect]
     Active Substance: AFLIBERCEPT
     Indication: Polypoidal choroidal vasculopathy
     Dosage: RIGHT EYE, TOTAL 14 INJECTIONS, 40 MG/ML
     Route: 031
     Dates: start: 201904, end: 20211223
  2. EYLEA [Suspect]
     Active Substance: AFLIBERCEPT
     Dosage: TO KEEP TREATMENT ON EYLEA 2MG WITH MORE INTENSIVE INTERVAL, 40 MG/ML
     Route: 031
     Dates: start: 20211223

REACTIONS (1)
  - Subretinal fluid [Recovered/Resolved]

NARRATIVE: CASE EVENT DATE: 20211223
